FAERS Safety Report 14839632 (Version 5)
Quarter: 2018Q3

REPORT INFORMATION
  Report Type: Spontaneous
  Country: US (occurrence: US)
  Receive Date: 20180502
  Receipt Date: 20180706
  Transmission Date: 20181010
  Serious: Yes (Other)
  Sender: FDA-Public Use
  Company Number: US-UNITED THERAPEUTICS-UNT-2018-006097

PATIENT
  Age: 54 Year
  Sex: Male
  Weight: 130.16 kg

DRUGS (3)
  1. XARELTO [Concomitant]
     Active Substance: RIVAROXABAN
     Indication: PRODUCT USED FOR UNKNOWN INDICATION
     Route: 065
  2. REMODULIN [Suspect]
     Active Substance: TREPROSTINIL
     Indication: PULMONARY ARTERIAL HYPERTENSION
     Dosage: 0.030 ?G/KG, CONTINUING
     Route: 058
     Dates: start: 20180309
  3. REMODULIN [Suspect]
     Active Substance: TREPROSTINIL
     Dosage: 0.032 ?G/KG, CONTINUING
     Route: 058

REACTIONS (18)
  - Scar [Unknown]
  - Peripheral swelling [Unknown]
  - Fatigue [Unknown]
  - Device use error [Unknown]
  - Bone pain [Unknown]
  - Atrial fibrillation [Unknown]
  - Pain in jaw [Unknown]
  - Device infusion issue [Unknown]
  - Device dislocation [Unknown]
  - Dyspnoea [Unknown]
  - Condition aggravated [Unknown]
  - Oedema [Unknown]
  - Arthralgia [Unknown]
  - Infusion site pain [Unknown]
  - Pain in extremity [Unknown]
  - Weight increased [Unknown]
  - Infusion site erythema [Unknown]
  - Infusion site induration [Unknown]

NARRATIVE: CASE EVENT DATE: 20180309
